FAERS Safety Report 4636488-0 (Version None)
Quarter: 2005Q2

REPORT INFORMATION
  Report Type: 
  Country: None (occurrence: None)
  Receive Date: 20050414
  Receipt Date: 20050414
  Transmission Date: 20051028
  Serious: No
  Sender: FDA-Public Use
  Company Number: None

PATIENT
  Sex: Female
  Weight: 81 kg

DRUGS (3)
  1. CYCLOPHOSPHAMIDE [Suspect]
     Dates: start: 20050214
  2. DOXORUBICIN HCL [Suspect]
  3. PACLITAXEL [Suspect]

REACTIONS (3)
  - CHEST DISCOMFORT [None]
  - CHEST PAIN [None]
  - THERAPY NON-RESPONDER [None]
